FAERS Safety Report 6220567-0 (Version None)
Quarter: 2009Q2

REPORT INFORMATION
  Report Type: 
  Country: None (occurrence: None)
  Receive Date: 20090610
  Receipt Date: 20090608
  Transmission Date: 20091009
  Serious: Yes (Other)
  Sender: FDA-Public Use
  Company Number: FR-BIOGENIDEC-2008BI002358

PATIENT
  Age: 42 Year
  Sex: Female

DRUGS (7)
  1. AVONEX [Suspect]
     Indication: RELAPSING-REMITTING MULTIPLE SCLEROSIS
     Route: 030
     Dates: start: 19980101, end: 20031001
  2. AVONEX [Suspect]
     Route: 030
     Dates: start: 20031001, end: 20080129
  3. AVONEX [Suspect]
     Route: 030
     Dates: start: 20090101, end: 20090512
  4. IMUREL [Concomitant]
     Indication: MULTIPLE SCLEROSIS
     Dates: start: 19871007, end: 19871102
  5. IMUREL [Concomitant]
     Dates: start: 19871109, end: 19871112
  6. ENDOXAN [Concomitant]
     Indication: MULTIPLE SCLEROSIS
     Dates: start: 19890101, end: 19890101
  7. LIORESAL [Concomitant]
     Indication: MUSCLE SPASTICITY
     Dates: start: 19890101

REACTIONS (1)
  - COLON CANCER [None]
